FAERS Safety Report 4799894-X (Version None)
Quarter: 2005Q4

REPORT INFORMATION
  Report Type: 
  Country: None (occurrence: None)
  Receive Date: 20051013
  Receipt Date: 20050926
  Transmission Date: 20060501
  Serious: Yes (Hospitalization)
  Sender: FDA-Public Use
  Company Number: EWC050946080

PATIENT
  Age: 80 Year
  Sex: Female
  Weight: 54 kg

DRUGS (5)
  1. FORTEO [Suspect]
     Indication: OSTEOPOROSIS
     Dosage: 20 UG/1 DAY
     Dates: start: 20040824, end: 20050803
  2. LORAZEPAM [Concomitant]
  3. L-THYROXINE [Concomitant]
  4. PERINDOPRIL [Concomitant]
  5. SERTRALINE [Concomitant]

REACTIONS (1)
  - INTESTINAL OBSTRUCTION [None]
